FAERS Safety Report 19073581 (Version 1)
Quarter: 2021Q1

REPORT INFORMATION
  Report Type: Spontaneous
  Country: US (occurrence: US)
  Receive Date: 20210330
  Receipt Date: 20210330
  Transmission Date: 20210420
  Serious: Yes (Other)
  Sender: FDA-Public Use
  Company Number: US-PFIZER INC-2021320968

PATIENT
  Age: 70 Year
  Sex: Female

DRUGS (4)
  1. LEXISCAN [Suspect]
     Active Substance: REGADENOSON
     Dosage: UNK
  2. GABAPENTIN. [Suspect]
     Active Substance: GABAPENTIN
     Dosage: UNK
  3. DEPAKOTE [Suspect]
     Active Substance: DIVALPROEX SODIUM
     Dosage: UNK
  4. GADOLINIUM [Suspect]
     Active Substance: GADOLINIUM
     Dosage: UNK

REACTIONS (1)
  - Seizure like phenomena [Unknown]
